FAERS Safety Report 9387236 (Version 3)
Quarter: 2014Q1

REPORT INFORMATION
  Report Type: Spontaneous
  Country: SE (occurrence: SE)
  Receive Date: 20130708
  Receipt Date: 20140108
  Transmission Date: 20141002
  Serious: Yes (Hospitalization, Disabling)
  Sender: FDA-Public Use
  Company Number: SE-B.I. PHARMACEUTICALS,INC./RIDGEFIELD-2013-SW-00343SW

PATIENT
  Age: 77 Year
  Sex: Male

DRUGS (3)
  1. PRADAXA [Suspect]
     Indication: CEREBROVASCULAR ACCIDENT PROPHYLAXIS
     Dosage: 220 MG
     Dates: start: 20130321
  2. SOTALOL [Concomitant]
     Indication: ATRIAL FIBRILLATION
     Dosage: 80 MG
     Dates: start: 20130321
  3. SIMVASTATIN [Concomitant]
     Dates: start: 20130321

REACTIONS (7)
  - Ischaemic stroke [Recovered/Resolved with Sequelae]
  - Brain injury [Unknown]
  - Ataxia [Unknown]
  - Balance disorder [Unknown]
  - Incorrect product storage [Recovered/Resolved with Sequelae]
  - Drug effect incomplete [Recovered/Resolved with Sequelae]
  - Medication error [Unknown]
